FAERS Safety Report 13186690 (Version 3)
Quarter: 2017Q2

REPORT INFORMATION
  Report Type: Report from Study
  Country: None (occurrence: AU)
  Receive Date: 20170205
  Receipt Date: 20170519
  Transmission Date: 20170830
  Serious: Yes (Other)
  Sender: FDA-Public Use
  Company Number: AU-ABBVIE-16K-008-1796413-00

PATIENT
  Age: 40 Year
  Sex: Male
  Weight: 103.6 kg

DRUGS (2)
  1. IMURAN [Concomitant]
     Active Substance: AZATHIOPRINE
     Indication: PRODUCT USED FOR UNKNOWN INDICATION
  2. HUMIRA [Suspect]
     Active Substance: ADALIMUMAB
     Indication: CROHN^S DISEASE
     Route: 058

REACTIONS (4)
  - Anal fistula [Unknown]
  - Drug level decreased [Not Recovered/Not Resolved]
  - Anorectal disorder [Unknown]
  - Anal abscess [Unknown]

NARRATIVE: CASE EVENT DATE: 201610
